FAERS Safety Report 7905491-7 (Version None)
Quarter: 2011Q4

REPORT INFORMATION
  Report Type: 
  Country: None (occurrence: None)
  Receive Date: 20111110
  Receipt Date: 20110330
  Transmission Date: 20120403
  Serious: Yes (Other)
  Sender: FDA-Public Use
  Company Number: US-BIOGENIDEC-2010BI007096

PATIENT
  Age: 34 Year
  Sex: Female

DRUGS (2)
  1. TYSABRI [Suspect]
     Indication: MULTIPLE SCLEROSIS
     Route: 042
     Dates: start: 20090710, end: 20100302
  2. TYSABRI [Suspect]
     Route: 042
     Dates: start: 20100910

REACTIONS (5)
  - SUNBURN [None]
  - PENICILLIOSIS [None]
  - SCAR [None]
  - PHLEBITIS [None]
  - FALL [None]
